FAERS Safety Report 4767246-4 (Version None)
Quarter: 2005Q3

REPORT INFORMATION
  Report Type: 
  Country: None (occurrence: None)
  Receive Date: 20050909
  Receipt Date: 20050909
  Transmission Date: 20060218
  Serious: Yes (Life-Threatening, Hospitalization)
  Sender: FDA-Public Use
  Company Number: None

PATIENT
  Age: 45 Year
  Sex: Female
  Weight: 73.4827 kg

DRUGS (2)
  1. DURAGESIC-100 [Suspect]
     Indication: ENDOMETRIOSIS
     Dosage: 125 MCG/HR TRANSDERMAL PATCH
     Route: 062
     Dates: start: 20050118, end: 20050119
  2. DURAGESIC-100 [Suspect]
     Indication: PAIN
     Dosage: 125 MCG/HR TRANSDERMAL PATCH
     Route: 062
     Dates: start: 20050118, end: 20050119

REACTIONS (4)
  - HYPOPNOEA [None]
  - NAUSEA [None]
  - RESPIRATORY DISORDER [None]
  - VOMITING [None]
